FAERS Safety Report 17099028 (Version 3)
Quarter: 2020Q1

REPORT INFORMATION
  Report Type: Spontaneous
  Country: US (occurrence: US)
  Receive Date: 20191202
  Receipt Date: 20200318
  Transmission Date: 20200409
  Serious: Yes (Hospitalization, Other)
  Sender: FDA-Public Use
  Company Number: US-PFIZER INC-2019514557

PATIENT
  Age: 63 Year
  Sex: Male

DRUGS (2)
  1. DILANTIN [Suspect]
     Active Substance: PHENYTOIN
     Indication: EPILEPSY
     Dosage: 100 MG, UNK (QUANTITY FOR 90 DAYS:- 450 )
  2. DEPAKOTE [Interacting]
     Active Substance: DIVALPROEX SODIUM
     Indication: EPILEPSY
     Dosage: UNK

REACTIONS (2)
  - Pulmonary thrombosis [Unknown]
  - Drug interaction [Unknown]
